FAERS Safety Report 15615315 (Version 1)
Quarter: 2018Q4

REPORT INFORMATION
  Report Type: Spontaneous
  Country: US (occurrence: US)
  Receive Date: 20181114
  Receipt Date: 20181114
  Transmission Date: 20190205
  Serious: Yes (Other)
  Sender: FDA-Public Use
  Company Number: US-LUPIN PHARMACEUTICALS INC.-2018-07938

PATIENT
  Age: 39 Year
  Sex: Female
  Weight: 70 kg

DRUGS (5)
  1. VANCOMYCIN [Suspect]
     Active Substance: VANCOMYCIN
     Dosage: 750 MG, BID, EVERY 12 HOURS
     Route: 042
  2. VANCOMYCIN [Suspect]
     Active Substance: VANCOMYCIN
     Dosage: 1000 MG, BID, EVERY 12 HOURS
     Route: 042
  3. VANCOMYCIN [Suspect]
     Active Substance: VANCOMYCIN
     Indication: PNEUMONIA STAPHYLOCOCCAL
     Dosage: 1500 MG, BID, EVERY 12 HOURS
     Route: 042
  4. VANCOMYCIN [Suspect]
     Active Substance: VANCOMYCIN
     Dosage: 1250 MG, BID,  EVERY 12 HOURS
     Route: 042
  5. PIPERACILLIN/TAZOBACTAM [Concomitant]
     Active Substance: PIPERACILLIN SODIUM\TAZOBACTAM SODIUM
     Indication: PNEUMONIA STAPHYLOCOCCAL
     Dosage: UNK
     Route: 065

REACTIONS (3)
  - Anticoagulation drug level above therapeutic [Unknown]
  - Drug clearance decreased [Unknown]
  - Drug-disease interaction [Unknown]
